FAERS Safety Report 8790600 (Version 1)
Quarter: 2012Q4

REPORT INFORMATION
  Report Type: Spontaneous
  Country: GB (occurrence: None)
  Receive Date: 20120906
  Receipt Date: 20120906
  Transmission Date: 20130627
  Serious: Yes (Other)
  Sender: FDA-Public Use
  Company Number: GB-1191651

PATIENT

DRUGS (1)
  1. BETOPTIC [Suspect]
     Indication: DRY EYE
     Dosage: (BETOPIC  0.5 %  Ophthalmic  solution for many years)
     Route: 047

REACTIONS (3)
  - Cerebrovascular accident [None]
  - Visual acuity reduced [None]
  - Dry eye [None]
